FAERS Safety Report 4705487-2 (Version None)
Quarter: 2005Q2

REPORT INFORMATION
  Report Type: 
  Country: None (occurrence: None)
  Receive Date: 20050629
  Receipt Date: 20041215
  Transmission Date: 20051028
  Serious: Yes (Hospitalization)
  Sender: FDA-Public Use
  Company Number: 200319929US

PATIENT
  Age: 13 Year
  Sex: Male
  Weight: 72 kg

DRUGS (1)
  1. METFORMIN [Suspect]
     Indication: DIABETES MELLITUS NON-INSULIN-DEPENDENT
     Dosage: 500 MG BID PO
     Route: 048
     Dates: start: 20030707

REACTIONS (7)
  - BLOOD GLUCOSE INCREASED [None]
  - CONVULSION [None]
  - HYPOGLYCAEMIA [None]
  - LOSS OF CONSCIOUSNESS [None]
  - PRADER-WILLI SYNDROME [None]
  - SOCIAL AVOIDANT BEHAVIOUR [None]
  - TREMOR [None]
